FAERS Safety Report 10101530 (Version 3)
Quarter: 2014Q2

REPORT INFORMATION
  Report Type: Spontaneous
  Country: US (occurrence: US)
  Receive Date: 20140424
  Receipt Date: 20140620
  Transmission Date: 20141212
  Serious: Yes (Other)
  Sender: FDA-Public Use
  Company Number: US-JNJFOC-20140317311

PATIENT
  Sex: Female

DRUGS (4)
  1. INVEGA SUSTENNA [Suspect]
     Indication: SCHIZOAFFECTIVE DISORDER
     Route: 030
     Dates: start: 2013
  2. INVEGA [Suspect]
     Indication: SCHIZOAFFECTIVE DISORDER
     Route: 048
  3. DEPAKOTE [Suspect]
     Indication: SCHIZOAFFECTIVE DISORDER
     Route: 048
  4. TRAZODONE [Concomitant]
     Indication: INSOMNIA
     Route: 065

REACTIONS (3)
  - Galactorrhoea [Unknown]
  - Amenorrhoea [Unknown]
  - Blood prolactin increased [Unknown]
